FAERS Safety Report 15661758 (Version 1)
Quarter: 2018Q4

REPORT INFORMATION
  Report Type: Spontaneous
  Country: US (occurrence: US)
  Receive Date: 20181116
  Receipt Date: 20181116
  Transmission Date: 20190205
  Serious: Yes (Life-Threatening)
  Sender: FDA-Public Use
  Company Number: None

PATIENT
  Age: 80 Year
  Sex: Female
  Weight: 86.18 kg

DRUGS (15)
  1. COQ10 [Concomitant]
     Active Substance: UBIDECARENONE
  2. VITAMIN C [Concomitant]
     Active Substance: ASCORBIC ACID
  3. CLARITIN [Concomitant]
     Active Substance: LORATADINE
  4. ASPIRIN. [Concomitant]
     Active Substance: ASPIRIN
  5. CLOPIDOGREL TAB [Concomitant]
  6. CALCIUM [Concomitant]
     Active Substance: CALCIUM
  7. PROPOFOL. [Suspect]
     Active Substance: PROPOFOL
     Indication: SURGERY
     Dosage: ?          OTHER ROUTE:INJECTION?
  8. SPIRONOLACT/HCTZ [Concomitant]
  9. ZINC. [Concomitant]
     Active Substance: ZINC
  10. LOSARTAN POT TAB [Concomitant]
  11. PRAVASTATIN. [Concomitant]
     Active Substance: PRAVASTATIN
  12. METOPROLOL SUC TAB [Concomitant]
  13. VIT B12 COMPLEX [Concomitant]
  14. PANTOPRAZOLE [Concomitant]
     Active Substance: PANTOPRAZOLE
  15. MAGNESIUM [Concomitant]
     Active Substance: MAGNESIUM

REACTIONS (6)
  - Tachycardia [None]
  - Faeces discoloured [None]
  - Hypotension [None]
  - Cardiac arrest [None]
  - Electrocardiogram ST segment elevation [None]
  - Staphylococcus test positive [None]

NARRATIVE: CASE EVENT DATE: 20150731
